FAERS Safety Report 7674621-7 (Version None)
Quarter: 2011Q3

REPORT INFORMATION
  Report Type: 
  Country: None (occurrence: None)
  Receive Date: 20110810
  Receipt Date: 20110808
  Transmission Date: 20111222
  Serious: Yes (Life-Threatening)
  Sender: FDA-Public Use
  Company Number: PHHY2011US42768

PATIENT
  Sex: Female

DRUGS (1)
  1. GILENYA [Suspect]
     Indication: MULTIPLE SCLEROSIS RELAPSE
     Dosage: 0.5 MG, QD
     Route: 048
     Dates: start: 20110505

REACTIONS (10)
  - COUGH [None]
  - PYREXIA [None]
  - RASH [None]
  - VISUAL IMPAIRMENT [None]
  - CHILLS [None]
  - MULTIPLE SCLEROSIS RELAPSE [None]
  - NAUSEA [None]
  - DYSPNOEA [None]
  - TREMOR [None]
  - NASOPHARYNGITIS [None]
